FAERS Safety Report 5018074-6 (Version None)
Quarter: 2006Q2

REPORT INFORMATION
  Report Type: 
  Country: None (occurrence: None)
  Receive Date: 20060605
  Receipt Date: 20060518
  Transmission Date: 20061013
  Serious: Yes (Other)
  Sender: FDA-Public Use
  Company Number: PHBS2006BE07642

PATIENT
  Age: 10 Year
  Sex: Female

DRUGS (2)
  1. ELIDEL [Suspect]
     Indication: ECZEMA
     Dosage: UNK, UNK
     Route: 061
     Dates: start: 20030601
  2. ELIDEL [Suspect]
     Route: 061
     Dates: start: 20040401

REACTIONS (1)
  - HODGKIN'S DISEASE [None]
